FAERS Safety Report 5195755-5 (Version None)
Quarter: 2006Q4

REPORT INFORMATION
  Report Type: 
  Country: None (occurrence: None)
  Receive Date: 20061222
  Receipt Date: 20061222
  Transmission Date: 20070319
  Serious: No
  Sender: FDA-Public Use
  Company Number: None

PATIENT
  Age: 64 Year
  Sex: Female

DRUGS (6)
  1. ARAVA [Suspect]
     Dates: start: 20040610, end: 20050302
  2. ACTIGALL [Concomitant]
  3. AMBIENT [Concomitant]
  4. VISTARIL [Concomitant]
  5. ACTONEL [Concomitant]
  6. VITAMIN [Concomitant]

REACTIONS (6)
  - ABDOMINAL DISCOMFORT [None]
  - CHOLELITHIASIS [None]
  - HEPATIC TRAUMA [None]
  - HYPERTHYROIDISM [None]
  - LIVER FUNCTION TEST ABNORMAL [None]
  - PRURITUS [None]
